FAERS Safety Report 9112665 (Version 7)
Quarter: 2014Q1

REPORT INFORMATION
  Report Type: Spontaneous
  Country: US (occurrence: US)
  Receive Date: 20130211
  Receipt Date: 20140225
  Transmission Date: 20141002
  Serious: Yes (Hospitalization, Other)
  Sender: FDA-Public Use
  Company Number: US-009507513-1302USA004246

PATIENT
  Sex: Female
  Weight: 54.88 kg

DRUGS (3)
  1. FOSAMAX [Suspect]
     Indication: OSTEOPOROSIS
     Dosage: 10 MG, UNK
     Route: 048
     Dates: start: 20010123, end: 20011004
  2. FOSAMAX [Suspect]
     Dosage: 70 MG, UNK
     Route: 048
     Dates: start: 20011011, end: 20080107
  3. ALENDRONATE SODIUM [Suspect]
     Indication: OSTEOPOROSIS
     Dosage: 70 MG, UNK
     Route: 048
     Dates: start: 200804, end: 201111

REACTIONS (107)
  - Acetabulum fracture [Unknown]
  - Hip fracture [Unknown]
  - Palpitations [Unknown]
  - Hip surgery [Unknown]
  - Femur fracture [Not Recovered/Not Resolved]
  - Small intestinal resection [Unknown]
  - Renal failure chronic [Not Recovered/Not Resolved]
  - Knee arthroplasty [Unknown]
  - Parathyroidectomy [Unknown]
  - Femur fracture [Unknown]
  - Knee arthroplasty [Unknown]
  - Abdominal operation [Unknown]
  - Pelvic fracture [Unknown]
  - Radius fracture [Unknown]
  - Humerus fracture [Unknown]
  - Open reduction of fracture [Unknown]
  - Intramedullary rod insertion [Unknown]
  - Fall [Unknown]
  - Closed fracture manipulation [Unknown]
  - Closed fracture manipulation [Unknown]
  - Delirium [Unknown]
  - Encephalopathy [Unknown]
  - Loss of consciousness [Unknown]
  - Osteoarthritis [Unknown]
  - Hip arthroplasty [Unknown]
  - Femur fracture [Unknown]
  - Internal fixation of fracture [Unknown]
  - Invasive ductal breast carcinoma [Unknown]
  - Fall [Unknown]
  - Tooth extraction [Unknown]
  - Fluid retention [Not Recovered/Not Resolved]
  - Dyspnoea [Unknown]
  - Fracture [Unknown]
  - Atelectasis [Unknown]
  - Pneumonia [Unknown]
  - Cardiomegaly [Unknown]
  - Aortic calcification [Unknown]
  - Atrioventricular block first degree [Unknown]
  - Bundle branch block left [Unknown]
  - Kyphosis [Unknown]
  - Spinal deformity [Unknown]
  - Hernia repair [Unknown]
  - Obstructive airways disorder [Unknown]
  - Hypertension [Unknown]
  - Rib fracture [Unknown]
  - Rib fracture [Unknown]
  - Spinal compression fracture [Unknown]
  - Atrial fibrillation [Unknown]
  - Vertigo positional [Unknown]
  - Emphysema [Unknown]
  - Hysterectomy [Unknown]
  - Spinal column stenosis [Unknown]
  - Iron deficiency anaemia [Unknown]
  - Cardiac failure congestive [Not Recovered/Not Resolved]
  - Supraventricular extrasystoles [Unknown]
  - Diastolic dysfunction [Unknown]
  - Anxiety [Unknown]
  - Vitamin B12 deficiency [Unknown]
  - Appetite disorder [Unknown]
  - Muscular weakness [Unknown]
  - Peripheral pulse decreased [Unknown]
  - Confusional state [Unknown]
  - Scoliosis [Unknown]
  - Neuropathy peripheral [Unknown]
  - Insomnia [Unknown]
  - Varicose vein [Unknown]
  - Chronic obstructive pulmonary disease [Not Recovered/Not Resolved]
  - Pernicious anaemia [Unknown]
  - Coronary artery disease [Unknown]
  - Osteoarthritis [Unknown]
  - Bundle branch block right [Unknown]
  - Gout [Unknown]
  - Memory impairment [Unknown]
  - Oophorectomy [Unknown]
  - Bladder operation [Unknown]
  - Cataract operation [Unknown]
  - Abdominal hernia repair [Unknown]
  - Abdominal mass [Unknown]
  - Abdominal wound dehiscence [Unknown]
  - Sideroblastic anaemia [Not Recovered/Not Resolved]
  - Depression [Recovering/Resolving]
  - Occult blood positive [Unknown]
  - Ataxia [Unknown]
  - Parathyroid disorder [Unknown]
  - Cataract [Unknown]
  - Small intestinal obstruction [Unknown]
  - Hallucination, visual [Unknown]
  - Osteoarthritis [Unknown]
  - Osteoarthritis [Unknown]
  - Contusion [Unknown]
  - Dementia [Unknown]
  - Head injury [Unknown]
  - Fall [Unknown]
  - Haemorrhagic anaemia [Unknown]
  - Cardiac failure congestive [Unknown]
  - Aortic stenosis [Unknown]
  - Urinary tract infection [Unknown]
  - Post procedural haemorrhage [Unknown]
  - Lethargy [Unknown]
  - Hypotension [Unknown]
  - Tachycardia [Unknown]
  - Breast lump removal [Unknown]
  - Urinary retention [Unknown]
  - Nausea [Unknown]
  - Headache [Unknown]
  - Gastrooesophageal reflux disease [Unknown]
  - Arthralgia [Not Recovered/Not Resolved]
